FAERS Safety Report 9214016 (Version 5)
Quarter: 2014Q2

REPORT INFORMATION
  Report Type: Report from Study
  Country: US (occurrence: US)
  Receive Date: 20130405
  Receipt Date: 20140424
  Transmission Date: 20141212
  Serious: Yes (Hospitalization, Other)
  Sender: FDA-Public Use
  Company Number: US-ACTELION-A-NJ2013-81505

PATIENT
  Age: 76 Year
  Sex: Female

DRUGS (12)
  1. TRACLEER [Suspect]
     Indication: PULMONARY ARTERIAL HYPERTENSION
     Dosage: UNK
     Route: 048
     Dates: start: 20060801
  2. VENTAVIS [Suspect]
     Indication: PULMONARY ARTERIAL HYPERTENSION
     Dosage: 5 MCG, 6 TIMES A DAY
     Route: 055
     Dates: start: 20130226, end: 20130326
  3. VENTAVIS [Suspect]
     Dosage: 5 UNK, UNK 6X DAY
     Route: 055
     Dates: start: 20130403, end: 20130406
  4. PLAVIX [Concomitant]
  5. CARVEDILOL [Concomitant]
  6. PEPCID [Concomitant]
  7. LISINOPRIL [Concomitant]
  8. MEDROL [Concomitant]
  9. METFORMIN [Concomitant]
  10. NEURONTIN [Concomitant]
  11. LASIX [Concomitant]
  12. POTASSIUM [Concomitant]

REACTIONS (6)
  - Cerebrovascular accident [Unknown]
  - Hypertension [Not Recovered/Not Resolved]
  - Tremor [Recovering/Resolving]
  - Muscle spasms [Recovering/Resolving]
  - Dyspnoea [Recovering/Resolving]
  - Asthenia [Recovering/Resolving]
